FAERS Safety Report 6163494-X (Version None)
Quarter: 2009Q2

REPORT INFORMATION
  Report Type: 
  Country: None (occurrence: None)
  Receive Date: 20090420
  Receipt Date: 20080320
  Transmission Date: 20091009
  Serious: Yes (Disabling)
  Sender: FDA-Public Use
  Company Number: SPV1-2008-00629

PATIENT
  Age: 34 Year
  Sex: Male

DRUGS (1)
  1. LIALDA [Suspect]
     Indication: COLITIS
     Dosage: 1.2 G, 2X/DAY:BID, ORAL
     Route: 048
     Dates: start: 20080311, end: 20080312

REACTIONS (1)
  - PANCREATITIS ACUTE [None]
